FAERS Safety Report 9429205 (Version 1)
Quarter: 2013Q3

REPORT INFORMATION
  Report Type: Spontaneous
  Country: NL (occurrence: NL)
  Receive Date: 20130730
  Receipt Date: 20130730
  Transmission Date: 20140515
  Serious: Yes (Hospitalization)
  Sender: FDA-Public Use
  Company Number: NL-JNJFOC-20130713078

PATIENT
  Age: 70 Year
  Sex: Female

DRUGS (1)
  1. GALANTAMINE HYDROBROMIDE [Suspect]
     Indication: PRODUCT USED FOR UNKNOWN INDICATION
     Route: 048
     Dates: start: 20130710, end: 20130715

REACTIONS (3)
  - Circulatory collapse [Recovered/Resolved]
  - Muscle spasms [Recovered/Resolved]
  - Blood pressure decreased [Recovered/Resolved]
